FAERS Safety Report 25006903 (Version 1)
Quarter: 2025Q1

REPORT INFORMATION
  Report Type: Spontaneous
  Country: US (occurrence: US)
  Receive Date: 20250225
  Receipt Date: 20250225
  Transmission Date: 20250408
  Serious: No
  Sender: Unknown Manufacturer
  Company Number: US-MTPC-MTDA2021-0024990

PATIENT

DRUGS (1)
  1. RADICAVA [Suspect]
     Active Substance: EDARAVONE
     Indication: Product used for unknown indication
     Route: 065

REACTIONS (3)
  - Confusional state [Unknown]
  - Disease progression [Unknown]
  - Anxiety [Unknown]
